FAERS Safety Report 13738728 (Version 1)
Quarter: 2017Q3

REPORT INFORMATION
  Report Type: Spontaneous
  Country: US (occurrence: US)
  Receive Date: 20170710
  Receipt Date: 20170710
  Transmission Date: 20171127
  Serious: No
  Sender: FDA-Public Use
  Company Number: US-SAOL THERAPEUTICS-2017SAO00223

PATIENT
  Age: 59 Year
  Sex: Male

DRUGS (7)
  1. BACLOFEN. [Suspect]
     Active Substance: BACLOFEN
     Indication: HEAD INJURY
     Dosage: 11.9 ?G, \DAY
     Route: 037
     Dates: start: 20160802
  2. DILAUDID [Suspect]
     Active Substance: HYDROMORPHONE HYDROCHLORIDE
     Dosage: 3.7 MG, UNK
     Route: 037
  3. MORPHINE [Suspect]
     Active Substance: MORPHINE
     Dosage: 14.9 MG, \DAY
     Route: 037
  4. BACLOFEN. [Suspect]
     Active Substance: BACLOFEN
     Indication: MUSCLE SPASTICITY
     Dosage: 20 ?G, \DAY
     Route: 037
  5. BACLOFEN. [Suspect]
     Active Substance: BACLOFEN
     Dosage: 3.665 ?G, \DAY
  6. BACLOFEN. [Suspect]
     Active Substance: BACLOFEN
     Dosage: 1 MG, UNK
     Route: 037
  7. MORPHINE [Suspect]
     Active Substance: MORPHINE
     Dosage: 20 MG, \DAY
     Route: 037

REACTIONS (4)
  - Unevaluable event [Unknown]
  - Therapy non-responder [Unknown]
  - Diarrhoea [Unknown]
  - Spinal disorder [Unknown]

NARRATIVE: CASE EVENT DATE: 20160720
